FAERS Safety Report 8864934 (Version 1)
Quarter: 2012Q4

REPORT INFORMATION
  Report Type: 
  Country: US (occurrence: US)
  Receive Date: 20121024
  Receipt Date: 20121024
  Transmission Date: 20130627
  Serious: No
  Sender: FDA-Public Use
  Company Number: US-AMGEN-USASP2012000325

PATIENT
  Age: 63 Year
  Sex: Female
  Weight: 58.96 kg

DRUGS (8)
  1. ENBREL [Suspect]
     Indication: PRODUCT USED FOR UNKNOWN INDICATION
     Dosage: 50 mg, qwk
     Route: 058
  2. METHOTREXATE [Concomitant]
     Dosage: 2.5 mg, UNK
  3. FOLIC ACID [Concomitant]
     Dosage: UNK
  4. PIROXICAM [Concomitant]
     Dosage: 10 mg, UNK
  5. SYNTHROID [Concomitant]
     Dosage: UNK
  6. VITAMIN D /00107901/ [Concomitant]
     Dosage: UNK
  7. FISH OIL [Concomitant]
     Dosage: UNK
  8. GLUCOSAMINE + CHONDROITIN [Concomitant]
     Dosage: UNK

REACTIONS (2)
  - Impaired healing [Unknown]
  - Injection site pain [Unknown]
